FAERS Safety Report 12774492 (Version 3)
Quarter: 2017Q1

REPORT INFORMATION
  Report Type: Spontaneous
  Country: JP (occurrence: JP)
  Receive Date: 20160923
  Receipt Date: 20170201
  Transmission Date: 20170428
  Serious: Yes (Death, Hospitalization, Other)
  Sender: FDA-Public Use
  Company Number: PHJP2016JP026596

PATIENT
  Age: 77 Year
  Sex: Female

DRUGS (3)
  1. EXFORGE [Suspect]
     Active Substance: AMLODIPINE BESYLATE\VALSARTAN
     Indication: HYPERTENSION
     Dosage: 1 DF, QD
     Route: 048
  2. GLIVEC [Suspect]
     Active Substance: IMATINIB MESYLATE
     Indication: CHRONIC MYELOID LEUKAEMIA
     Dosage: 400 MG, UNK
     Route: 048
  3. PREDNISOLONE. [Concomitant]
     Active Substance: PREDNISOLONE
     Indication: CHRONIC MYELOID LEUKAEMIA
     Dosage: 40 MG, UNK
     Route: 065
     Dates: start: 20160127

REACTIONS (28)
  - Septic shock [Fatal]
  - Malignant neoplasm progression [Unknown]
  - Joint swelling [Unknown]
  - Musculoskeletal pain [Unknown]
  - Eye disorder [Unknown]
  - Face oedema [Unknown]
  - Osteomyelitis [Unknown]
  - Alpha haemolytic streptococcal infection [Unknown]
  - Respiratory failure [Unknown]
  - Febrile neutropenia [Unknown]
  - Acute lymphocytic leukaemia [Unknown]
  - Escherichia sepsis [Unknown]
  - Herpes simplex [Unknown]
  - Dizziness [Unknown]
  - Blood pressure decreased [Fatal]
  - Escherichia infection [Unknown]
  - Arthralgia [Fatal]
  - White blood cell count increased [Unknown]
  - Blast cell count increased [Recovered/Resolved]
  - Arthritis infective [Unknown]
  - Nausea [Unknown]
  - Decreased appetite [Unknown]
  - Blast crisis in myelogenous leukaemia [Unknown]
  - Anaemia [Unknown]
  - Subileus [Unknown]
  - Chronic myeloid leukaemia [Unknown]
  - Pyrexia [Unknown]
  - Generalised oedema [Unknown]

NARRATIVE: CASE EVENT DATE: 201601
